FAERS Safety Report 25571687 (Version 1)
Quarter: 2025Q3

REPORT INFORMATION
  Report Type: Spontaneous
  Country: US (occurrence: None)
  Receive Date: 20250717
  Receipt Date: 20250717
  Transmission Date: 20251021
  Serious: Yes (Hospitalization)
  Sender: FDA-CTU
  Company Number: None

PATIENT
  Age: 68 Year
  Sex: Female
  Weight: 77.1 kg

DRUGS (4)
  1. FLUOROURACIL [Suspect]
     Active Substance: FLUOROURACIL
  2. XELODA [Suspect]
     Active Substance: CAPECITABINE
  3. CAMPTOSAR [Suspect]
     Active Substance: IRINOTECAN HYDROCHLORIDE
  4. ELOXATIN [Suspect]
     Active Substance: OXALIPLATIN

REACTIONS (2)
  - Abdominal pain [None]
  - Constipation [None]

NARRATIVE: CASE EVENT DATE: 20250709
